FAERS Safety Report 17059798 (Version 1)
Quarter: 2019Q4

REPORT INFORMATION
  Report Type: Spontaneous
  Country: US (occurrence: US)
  Receive Date: 20191121
  Receipt Date: 20191121
  Transmission Date: 20200122
  Serious: No
  Sender: FDA-Public Use
  Company Number: None

PATIENT
  Age: 55 Year
  Sex: Female
  Weight: 65.7 kg

DRUGS (1)
  1. EQUATE HAIR REGROWTH TREATMENT FOR WOMEN [Suspect]
     Active Substance: MINOXIDIL
     Indication: ALOPECIA
     Route: 061
     Dates: start: 20191111, end: 20191114

REACTIONS (11)
  - Erythema [None]
  - Product use complaint [None]
  - Burning sensation [None]
  - Product complaint [None]
  - Rash pruritic [None]
  - Rash [None]
  - Rash papular [None]
  - Eye swelling [None]
  - Application site rash [None]
  - Rash erythematous [None]
  - Lacrimation increased [None]

NARRATIVE: CASE EVENT DATE: 20191115
